FAERS Safety Report 6673436-6 (Version None)
Quarter: 2010Q2

REPORT INFORMATION
  Report Type: 
  Country: None (occurrence: None)
  Receive Date: 20100408
  Receipt Date: 20100326
  Transmission Date: 20101027
  Serious: Yes (Other)
  Sender: FDA-Public Use
  Company Number: KR-PFIZER INC-2010038585

PATIENT
  Age: 74 Year
  Sex: Female

DRUGS (1)
  1. TOVIAZ [Suspect]
     Dosage: 4 MG, ON THE EVENING
     Route: 048
     Dates: start: 20100325, end: 20100325

REACTIONS (5)
  - FEELING HOT [None]
  - FLUSHING [None]
  - INSOMNIA [None]
  - SALIVARY HYPERSECRETION [None]
  - SWELLING FACE [None]
